FAERS Safety Report 17735336 (Version 3)
Quarter: 2020Q2

REPORT INFORMATION
  Report Type: Spontaneous
  Country: IT (occurrence: IT)
  Receive Date: 20200501
  Receipt Date: 20200630
  Transmission Date: 20200714
  Serious: Yes (Other)
  Sender: FDA-Public Use
  Company Number: NVSC2020IT115766

PATIENT
  Age: 43 Year
  Sex: Male

DRUGS (11)
  1. OXALIPLATIN. [Suspect]
     Active Substance: OXALIPLATIN
     Indication: METASTASES TO LIVER
  2. CAPECITABINE. [Suspect]
     Active Substance: CAPECITABINE
     Dosage: UNK (RESTARTED TREATMENT)
     Route: 065
     Dates: start: 201303
  3. GEMCITABINE. [Suspect]
     Active Substance: GEMCITABINE
     Indication: METASTASES TO LIVER
     Dosage: 1000 MG/M2, CYCLIC, IN COMBINATION WITH CAPECITABINE ON DAY 1 AND 8
     Route: 065
     Dates: start: 201001, end: 201204
  4. CAPECITABINE. [Suspect]
     Active Substance: CAPECITABINE
     Indication: PANCREATIC CARCINOMA
     Dosage: UNK (ANOTHER FOUR CYCLES OF CAPECITABINE UNTIL NOV/2012)
     Route: 065
     Dates: end: 201211
  5. GEMCITABINE. [Suspect]
     Active Substance: GEMCITABINE
     Indication: PANCREATIC CARCINOMA
     Dosage: UNK (ANOTHER FOUR CYCLES OF CAPECITABINE UNTIL NOV/2012)
     Route: 065
     Dates: end: 201211
  6. GEMCITABINE. [Suspect]
     Active Substance: GEMCITABINE
     Dosage: UNK (RESTARTED TREATMENT)
     Route: 065
     Dates: start: 201303
  7. OXALIPLATIN. [Suspect]
     Active Substance: OXALIPLATIN
     Indication: ACINAR CELL CARCINOMA OF PANCREAS
     Dosage: 100 MG/M2, CYCLIC, 14 DAY CYCLE
     Route: 065
  8. CAPECITABINE. [Suspect]
     Active Substance: CAPECITABINE
     Indication: METASTASES TO LIVER
     Dosage: 1300 MILLIGRAM/SQ. METER, UNK
     Route: 065
     Dates: start: 201001, end: 201204
  9. CAPECITABINE. [Suspect]
     Active Substance: CAPECITABINE
     Indication: ACINAR CELL CARCINOMA OF PANCREAS
     Dosage: 1300 MG/M2, CYCLIC
     Route: 065
  10. GEMCITABINE. [Suspect]
     Active Substance: GEMCITABINE
     Indication: ACINAR CELL CARCINOMA OF PANCREAS
     Dosage: 1000 MG/M2, CYCLIC, 14 DAY CYCLE
     Route: 065
  11. OXALIPLATIN. [Suspect]
     Active Substance: OXALIPLATIN
     Indication: PANCREATIC CARCINOMA

REACTIONS (7)
  - Disease recurrence [Unknown]
  - Hepatic lesion [Recovered/Resolved]
  - Anaemia [Unknown]
  - Disease progression [Unknown]
  - Neutropenia [Unknown]
  - Therapy partial responder [Unknown]
  - Product use in unapproved indication [Unknown]

NARRATIVE: CASE EVENT DATE: 201104
